FAERS Safety Report 12317477 (Version 1)
Quarter: 2016Q2

REPORT INFORMATION
  Report Type: Spontaneous
  Country: US (occurrence: None)
  Receive Date: 20160428
  Receipt Date: 20160428
  Transmission Date: 20160815
  Serious: No
  Sender: FDA-Public Use
  Company Number: None

PATIENT
  Age: 69 Year
  Sex: Male

DRUGS (11)
  1. TRAZODONE [Concomitant]
     Active Substance: TRAZODONE HYDROCHLORIDE
  2. NEXIUM [Concomitant]
     Active Substance: ESOMEPRAZOLE MAGNESIUM
  3. LORAZEPAM. [Concomitant]
     Active Substance: LORAZEPAM
  4. LOVASTATIN. [Concomitant]
     Active Substance: LOVASTATIN
  5. VOTRIENT [Suspect]
     Active Substance: PAZOPANIB HYDROCHLORIDE
     Indication: RENAL CANCER
     Route: 048
     Dates: start: 20160107
  6. ASPIRIN. [Concomitant]
     Active Substance: ASPIRIN
  7. VALSARTAN. [Concomitant]
     Active Substance: VALSARTAN
  8. HYDROCHLOROTHIAZIDE. [Concomitant]
     Active Substance: HYDROCHLOROTHIAZIDE
  9. KRILL OIL [Concomitant]
     Active Substance: DIETARY SUPPLEMENT
  10. AMLODIPINE [Concomitant]
     Active Substance: AMLODIPINE BESYLATE
  11. SERTRALINE [Concomitant]
     Active Substance: SERTRALINE HYDROCHLORIDE

REACTIONS (2)
  - Gingival bleeding [None]
  - Haemorrhage [None]

NARRATIVE: CASE EVENT DATE: 20160427
